FAERS Safety Report 7068675-9 (Version None)
Quarter: 2010Q4

REPORT INFORMATION
  Report Type: 
  Country: None (occurrence: None)
  Receive Date: 20101027
  Receipt Date: 20101027
  Transmission Date: 20110411
  Serious: Yes (Other)
  Sender: FDA-Public Use
  Company Number: None

PATIENT
  Age: 14 Year
  Sex: Male
  Weight: 89.3586 kg

DRUGS (1)
  1. SINGULAIR [Suspect]
     Indication: MULTIPLE ALLERGIES
     Dosage: 10 MG 1 A DAY (OFF AND ON FOR YEARS)

REACTIONS (6)
  - ABDOMINAL PAIN UPPER [None]
  - ABNORMAL BEHAVIOUR [None]
  - ABNORMAL DREAMS [None]
  - ABNORMAL SLEEP-RELATED EVENT [None]
  - ATTENTION DEFICIT/HYPERACTIVITY DISORDER [None]
  - NAUSEA [None]
